FAERS Safety Report 5604203-X (Version None)
Quarter: 2008Q1

REPORT INFORMATION
  Report Type: 
  Country: None (occurrence: None)
  Receive Date: 20080128
  Receipt Date: 20080118
  Transmission Date: 20080703
  Serious: Yes (Hospitalization)
  Sender: FDA-Public Use
  Company Number: JP-NOVOPROD-271209

PATIENT
  Age: 67 Year
  Sex: Male
  Weight: 77 kg

DRUGS (4)
  1. NOVORAPID CHU FLEXPEN [Suspect]
     Indication: TYPE 2 DIABETES MELLITUS
     Dosage: 19 IU, QD
     Dates: start: 20030218, end: 20031031
  2. PENFILL N CHU [Concomitant]
     Dosage: 12 IU, QD
     Route: 058
     Dates: start: 20030218
  3. ALTAT [Concomitant]
     Indication: GASTRIC ULCER
     Route: 048
  4. ASPIRIN [Concomitant]
     Indication: CAROTID ARTERY DISEASE
     Route: 048

REACTIONS (1)
  - OEDEMA PERIPHERAL [None]
